FAERS Safety Report 18920114 (Version 1)
Quarter: 2021Q1

REPORT INFORMATION
  Report Type: Spontaneous
  Country: US (occurrence: US)
  Receive Date: 20210222
  Receipt Date: 20210222
  Transmission Date: 20210420
  Serious: No
  Sender: FDA-Public Use
  Company Number: US-TEVA-2021-US-1880411

PATIENT
  Sex: Female

DRUGS (2)
  1. AUTOJECT2 (DEVICE) [Suspect]
     Active Substance: DEVICE
     Route: 065
  2. COPAXONE [Suspect]
     Active Substance: GLATIRAMER ACETATE
     Route: 065

REACTIONS (3)
  - Product label issue [Unknown]
  - Incorrect drug administration rate [Unknown]
  - Injection site reaction [Unknown]
